FAERS Safety Report 8345241-6 (Version None)
Quarter: 2012Q2

REPORT INFORMATION
  Report Type: 
  Country: None (occurrence: None)
  Receive Date: 20120504
  Receipt Date: 20120501
  Transmission Date: 20120825
  Serious: Yes (Hospitalization)
  Sender: FDA-Public Use
  Company Number: 2011SP051273

PATIENT
  Age: 27 Year
  Sex: Female
  Weight: 95.2554 kg

DRUGS (1)
  1. NUVARING [Suspect]
     Indication: CONTRACEPTION
     Dates: start: 20040101, end: 20091117

REACTIONS (16)
  - PREGNANCY WITH CONTRACEPTIVE DEVICE [None]
  - APPENDICITIS [None]
  - DYSPNOEA [None]
  - MESENTERIC VEIN THROMBOSIS [None]
  - PULMONARY EMBOLISM [None]
  - SPLENOMEGALY [None]
  - DEPRESSION [None]
  - CHEST DISCOMFORT [None]
  - URINARY TRACT INFECTION [None]
  - HEPATIC STEATOSIS [None]
  - CHOLECYSTITIS [None]
  - CHOLELITHIASIS [None]
  - HEPATITIS [None]
  - NAUSEA [None]
  - DEEP VEIN THROMBOSIS [None]
  - WEIGHT DECREASED [None]
